FAERS Safety Report 5738801-X (Version None)
Quarter: 2008Q2

REPORT INFORMATION
  Report Type: 
  Country: None (occurrence: None)
  Receive Date: 20080515
  Receipt Date: 20080310
  Transmission Date: 20081010
  Serious: No
  Sender: FDA-Public Use
  Company Number: A0714311A

PATIENT
  Age: 33 Year
  Sex: Female

DRUGS (2)
  1. VERAMYST [Suspect]
     Dosage: 2 PER DAY
     Route: 045
     Dates: start: 20080229, end: 20080302
  2. ADVAIR DISKUS 100/50 [Concomitant]

REACTIONS (3)
  - HEADACHE [None]
  - HYPOAESTHESIA FACIAL [None]
  - HYPOAESTHESIA ORAL [None]
